FAERS Safety Report 15385117 (Version 1)
Quarter: 2018Q3

REPORT INFORMATION
  Report Type: Spontaneous
  Country: GR (occurrence: GR)
  Receive Date: 20180914
  Receipt Date: 20180914
  Transmission Date: 20181010
  Serious: Yes (Other)
  Sender: FDA-Public Use
  Company Number: PHHY2018GR094412

PATIENT

DRUGS (1)
  1. METHYLPREDNISOLONE. [Suspect]
     Active Substance: METHYLPREDNISOLONE
     Indication: TEMPORAL ARTERITIS
     Dosage: 4 MG, QD
     Route: 065

REACTIONS (4)
  - Diabetes mellitus [Unknown]
  - Osteoporosis [Unknown]
  - Microangiopathy [Unknown]
  - Product use in unapproved indication [Unknown]
